FAERS Safety Report 14802666 (Version 1)
Quarter: 2018Q2

REPORT INFORMATION
  Report Type: Spontaneous
  Country: US (occurrence: US)
  Receive Date: 20180424
  Receipt Date: 20180424
  Transmission Date: 20180711
  Serious: No
  Sender: FDA-Public Use
  Company Number: US-ACTELION-A-NJ2017-164559

PATIENT
  Age: 71 Year
  Sex: Female

DRUGS (23)
  1. OPSUMIT [Suspect]
     Active Substance: MACITENTAN
     Indication: COR PULMONALE CHRONIC
     Dosage: 10 MG, UNK
     Route: 048
  2. SILDENAFIL. [Concomitant]
     Active Substance: SILDENAFIL
  3. BUMETANIDE. [Concomitant]
     Active Substance: BUMETANIDE
  4. BENZTROPINE. [Concomitant]
     Active Substance: BENZTROPINE
  5. DIAZEPAM. [Concomitant]
     Active Substance: DIAZEPAM
  6. OMEPRAZOLE. [Concomitant]
     Active Substance: OMEPRAZOLE
     Dosage: 20 MG, UNK
  7. CIPRO [Concomitant]
     Active Substance: CIPROFLOXACIN HYDROCHLORIDE
  8. SERTRALINE HCL [Concomitant]
     Active Substance: SERTRALINE HYDROCHLORIDE
  9. FUROSEMIDE. [Concomitant]
     Active Substance: FUROSEMIDE
  10. OXYBUTININ ACCORD [Concomitant]
  11. BENZTROPINE MESILATE [Concomitant]
     Active Substance: BENZTROPINE MESYLATE
     Dosage: 1 MG, UNK
  12. METFORMIN HCL [Concomitant]
     Active Substance: METFORMIN HYDROCHLORIDE
  13. LITHIUM. [Concomitant]
     Active Substance: LITHIUM
  14. TYVASO [Concomitant]
     Active Substance: TREPROSTINIL
  15. BACLOFEN. [Concomitant]
     Active Substance: BACLOFEN
  16. TOFRANIL [Concomitant]
     Active Substance: IMIPRAMINE HYDROCHLORIDE
  17. ENTEX LA [Concomitant]
     Active Substance: GUAIFENESIN\PHENYLEPHRINE HYDROCHLORIDE
  18. DITROPAN [Concomitant]
     Active Substance: OXYBUTYNIN CHLORIDE
  19. GABAPENTIN. [Concomitant]
     Active Substance: GABAPENTIN
  20. HYDROCODONE BITARTRATE AND ACETAMINOPHEN [Concomitant]
     Active Substance: ACETAMINOPHEN\HYDROCODONE BITARTRATE
  21. LEVOTHYROXINE. [Concomitant]
     Active Substance: LEVOTHYROXINE
  22. MONTELUKAST [Concomitant]
     Active Substance: MONTELUKAST SODIUM
  23. ACYCLOVIR. [Concomitant]
     Active Substance: ACYCLOVIR

REACTIONS (4)
  - Headache [Not Recovered/Not Resolved]
  - Abdominal discomfort [Not Recovered/Not Resolved]
  - Dyspepsia [Not Recovered/Not Resolved]
  - Abdominal pain upper [Not Recovered/Not Resolved]
